FAERS Safety Report 6635202-7 (Version None)
Quarter: 2010Q1

REPORT INFORMATION
  Report Type: 
  Country: None (occurrence: None)
  Receive Date: 20100315
  Receipt Date: 20100310
  Transmission Date: 20100710
  Serious: Yes (Other)
  Sender: FDA-Public Use
  Company Number: US-GILEAD-2010-0026313

PATIENT
  Sex: Female

DRUGS (17)
  1. LETAIRIS [Suspect]
     Indication: PULMONARY ARTERIAL HYPERTENSION
     Route: 048
     Dates: start: 20091123
  2. LETAIRIS [Suspect]
     Route: 048
     Dates: start: 20090428, end: 20091122
  3. LETAIRIS [Suspect]
     Route: 048
     Dates: start: 20090331, end: 20090427
  4. SPIRIVA [Concomitant]
  5. IPRATROPIUM [Concomitant]
  6. ALBUTEROL [Concomitant]
  7. SINGULAIR [Concomitant]
  8. DIOVAN [Concomitant]
  9. CARTIA XT [Concomitant]
  10. NASONEX [Concomitant]
  11. VITAMIN D [Concomitant]
  12. AMOXICILLIN [Concomitant]
  13. EVISTA [Concomitant]
  14. LIPITOR [Concomitant]
  15. ASTEPRO [Concomitant]
  16. PREDNISONE TAB [Concomitant]
  17. OMEPRAZOLE [Concomitant]

REACTIONS (2)
  - NO THERAPEUTIC RESPONSE [None]
  - UNEVALUABLE EVENT [None]
